FAERS Safety Report 12696775 (Version 1)
Quarter: 2016Q3

REPORT INFORMATION
  Report Type: Spontaneous
  Country: US (occurrence: None)
  Receive Date: 20160829
  Receipt Date: 20160829
  Transmission Date: 20161109
  Serious: Yes (Death, Hospitalization)
  Sender: FDA-Public Use
  Company Number: None

PATIENT
  Age: 61 Year
  Sex: Male
  Weight: 56.7 kg

DRUGS (11)
  1. METOPROLOL. [Concomitant]
     Active Substance: METOPROLOL
  2. ALBUTEROL. [Concomitant]
     Active Substance: ALBUTEROL
  3. MULTIVITAMIN [Concomitant]
     Active Substance: VITAMINS
  4. LISINOPRIL. [Concomitant]
     Active Substance: LISINOPRIL
  5. POTASSIUM [Concomitant]
     Active Substance: POTASSIUM
  6. ASPIRIN. [Concomitant]
     Active Substance: ASPIRIN
  7. MORPHINE [Concomitant]
     Active Substance: MORPHINE
  8. LASIX [Concomitant]
     Active Substance: FUROSEMIDE
  9. CYCLOBENZAPRINE [Concomitant]
     Active Substance: CYCLOBENZAPRINE
  10. PLAVIX [Suspect]
     Active Substance: CLOPIDOGREL BISULFATE
     Indication: ANTICOAGULANT THERAPY
     Dosage: 75MG 1 PILL ONCE DAILY BY MOUTH
     Route: 048
     Dates: start: 20160116, end: 20160802
  11. DOCUSATE [Concomitant]
     Active Substance: DOCUSATE

REACTIONS (13)
  - Haemoptysis [None]
  - Asthenia [None]
  - Yellow skin [None]
  - Skin haemorrhage [None]
  - Gastric haemorrhage [None]
  - Skin discolouration [None]
  - Peripheral swelling [None]
  - Dyspnoea [None]
  - Confusional state [None]
  - Headache [None]
  - Decreased appetite [None]
  - Skin atrophy [None]
  - Contusion [None]

NARRATIVE: CASE EVENT DATE: 20160115
